FAERS Safety Report 14351002 (Version 2)
Quarter: 2019Q1

REPORT INFORMATION
  Report Type: Spontaneous
  Country: KW (occurrence: KW)
  Receive Date: 20180104
  Receipt Date: 20190219
  Transmission Date: 20190417
  Serious: Yes (Other)
  Sender: FDA-Public Use
  Company Number: KW-SA-2018SA000717

PATIENT
  Age: 30 Year
  Sex: Male

DRUGS (1)
  1. SEVELAMER SALT NOT SPECIFIED [Suspect]
     Active Substance: SEVELAMER
     Indication: HYPERPHOSPHATAEMIA
     Dosage: UNK UNK,UNK
     Route: 065

REACTIONS (7)
  - Renal tubular necrosis [Unknown]
  - Product deposit [Unknown]
  - Peritonitis [Unknown]
  - Intestinal perforation [Unknown]
  - Renal abscess [Unknown]
  - Septic shock [Unknown]
  - Inflammation [Unknown]
